FAERS Safety Report 9303454 (Version 1)
Quarter: 2013Q2

REPORT INFORMATION
  Report Type: Spontaneous
  Country: US (occurrence: US)
  Receive Date: 20130522
  Receipt Date: 20130522
  Transmission Date: 20140414
  Serious: No
  Sender: FDA-Public Use
  Company Number: US-BAYER-2013-063288

PATIENT
  Age: 88 Year
  Sex: Female
  Weight: 49.89 kg

DRUGS (2)
  1. ALEVE TABLET [Suspect]
     Indication: ANALGESIC THERAPY
     Dosage: 1 DF, QD
     Dates: start: 20130511
  2. VITAMIN D3 [Concomitant]

REACTIONS (1)
  - Pre-existing condition improved [None]
